FAERS Safety Report 8446455-7 (Version None)
Quarter: 2012Q2

REPORT INFORMATION
  Report Type: 
  Country: None (occurrence: None)
  Receive Date: 20120618
  Receipt Date: 20120328
  Transmission Date: 20120825
  Serious: No
  Sender: FDA-Public Use
  Company Number: US-TEVA-330427USA

PATIENT
  Sex: Female

DRUGS (2)
  1. FENTANYL-100 [Suspect]
     Route: 062
  2. ACTIQ [Suspect]

REACTIONS (4)
  - PYREXIA [None]
  - DRUG PRESCRIBING ERROR [None]
  - SKIN IRRITATION [None]
  - NIGHT SWEATS [None]
